FAERS Safety Report 17451668 (Version 4)
Quarter: 2020Q2

REPORT INFORMATION
  Report Type: Spontaneous
  Country: US (occurrence: US)
  Receive Date: 20200224
  Receipt Date: 20200609
  Transmission Date: 20200713
  Serious: No
  Sender: FDA-Public Use
  Company Number: US-PFIZER INC-2020080178

PATIENT
  Age: 79 Year
  Sex: Female
  Weight: 109.77 kg

DRUGS (12)
  1. DULOXETINE. [Concomitant]
     Active Substance: DULOXETINE
     Indication: PAIN
     Dosage: 30 MG, DAILY
     Route: 048
     Dates: start: 2015
  2. IBRANCE [Suspect]
     Active Substance: PALBOCICLIB
     Indication: BREAST CANCER METASTATIC
     Dosage: 125 MG, CYCLIC (21 DAYS AND OFF 7DAYS)
     Route: 048
     Dates: start: 201809, end: 2018
  3. IBRANCE [Suspect]
     Active Substance: PALBOCICLIB
     Dosage: 75 MG, CYCLIC  (TAKE 21 DAYS AND OFF 7 DAYS)
     Route: 048
     Dates: start: 201809
  4. TAMOXIFEN [Concomitant]
     Active Substance: TAMOXIFEN
     Dosage: UNK
  5. IBRANCE [Suspect]
     Active Substance: PALBOCICLIB
     Dosage: 125 MG
     Dates: start: 202002, end: 2020
  6. XGEVA [Concomitant]
     Active Substance: DENOSUMAB
     Indication: NEOPLASM MALIGNANT
     Dosage: UNK, MONTHLY
     Dates: start: 201810
  7. ALPRAZOLAM. [Concomitant]
     Active Substance: ALPRAZOLAM
     Indication: ANXIETY
     Dosage: 0.5 MG, AS NEEDED (FOR 4 YEARS )
     Route: 048
  8. GABAPENTIN. [Concomitant]
     Active Substance: GABAPENTIN
     Indication: NEUROPATHY PERIPHERAL
     Dosage: 300 MG (TWO THREE TIMES DAILY)
     Route: 048
     Dates: start: 2015
  9. ESCITALOPRAM [Concomitant]
     Active Substance: ESCITALOPRAM OXALATE
     Indication: DEPRESSION
     Dosage: 100 MG, DAILY (TAKING ON AND OFF )
     Route: 048
     Dates: start: 2015
  10. IBRANCE [Suspect]
     Active Substance: PALBOCICLIB
     Dosage: 75 MG
     Dates: start: 2020
  11. LETROZOLE. [Concomitant]
     Active Substance: LETROZOLE
     Indication: OESTROGENIC EFFECT
     Dosage: 2.5 MG, DAILY
     Route: 048
     Dates: start: 201809
  12. IBRANCE [Suspect]
     Active Substance: PALBOCICLIB
     Dosage: 100 MG
     Dates: start: 2018, end: 2018

REACTIONS (7)
  - Fatigue [Unknown]
  - Incorrect dose administered [Unknown]
  - Malaise [Unknown]
  - Lethargy [Unknown]
  - Product dispensing error [Unknown]
  - Neoplasm progression [Unknown]
  - Asthenia [Unknown]

NARRATIVE: CASE EVENT DATE: 2020
